FAERS Safety Report 9475626 (Version 1)
Quarter: 2013Q3

REPORT INFORMATION
  Report Type: Spontaneous
  Country: US (occurrence: None)
  Receive Date: 20130822
  Receipt Date: 20130822
  Transmission Date: 20140515
  Serious: Yes (Other)
  Sender: FDA-Public Use
  Company Number: None

PATIENT
  Age: 37 Year
  Sex: Female
  Weight: 51.71 kg

DRUGS (1)
  1. VITAMIN B COMPLEX [Suspect]
     Dates: start: 20120601, end: 20130301

REACTIONS (7)
  - Acne [None]
  - Hirsutism [None]
  - Muscle hypertrophy [None]
  - Asthenia [None]
  - Amenorrhoea [None]
  - Alopecia [None]
  - High density lipoprotein decreased [None]
